FAERS Safety Report 9016149 (Version 2)
Quarter: 2013Q1

REPORT INFORMATION
  Report Type: Spontaneous
  Country: US (occurrence: US)
  Receive Date: 20130116
  Receipt Date: 20130219
  Transmission Date: 20140127
  Serious: Yes (Other)
  Sender: FDA-Public Use
  Company Number: US-FRI-1000041633

PATIENT
  Age: 72 Year
  Sex: Female
  Weight: 71.7 kg

DRUGS (11)
  1. VIIBRYD [Suspect]
     Indication: DEPRESSION
     Dosage: 10 MG
     Route: 048
     Dates: start: 20121121, end: 20121203
  2. VIIBRYD [Suspect]
     Indication: FIBROMYALGIA
     Dosage: 20 MG
     Route: 048
     Dates: start: 20121204, end: 20130117
  3. AMLODIPINE [Suspect]
     Indication: BLOOD PRESSURE INCREASED
     Dosage: 5 MG
     Dates: start: 20121217, end: 20130114
  4. LOSARTAN [Concomitant]
     Indication: HYPERTENSION
     Dosage: 50 MG
     Dates: start: 20121001, end: 20121203
  5. LOSARTAN [Concomitant]
     Dosage: 100 MG
     Dates: start: 20121204
  6. PREMARIN [Concomitant]
     Dosage: 0.625 MG
     Dates: end: 20121203
  7. PREMARIN [Concomitant]
     Dosage: 0.45 MG
     Dates: start: 20121204
  8. NIASPAN [Concomitant]
     Indication: BLOOD CHOLESTEROL INCREASED
     Dosage: 500 MG
  9. WELLBUTRIN [Concomitant]
     Indication: DEPRESSION
     Dosage: 150 MG
  10. KLONOPIN [Concomitant]
     Indication: ANXIETY
     Dosage: 1 MG
  11. ASPIRIN [Concomitant]
     Dosage: 81 MG

REACTIONS (7)
  - Blood pressure increased [Not Recovered/Not Resolved]
  - Hypoaesthesia [Recovered/Resolved]
  - Headache [Recovered/Resolved]
  - Musculoskeletal stiffness [Recovered/Resolved]
  - Palpitations [Recovered/Resolved]
  - Flushing [Recovered/Resolved]
  - Muscle spasms [Recovered/Resolved]
